FAERS Safety Report 4911240-7 (Version None)
Quarter: 2006Q1

REPORT INFORMATION
  Report Type: 
  Country: None (occurrence: None)
  Receive Date: 20060209
  Receipt Date: 20060125
  Transmission Date: 20060701
  Serious: Yes (Death)
  Sender: FDA-Public Use
  Company Number: 2006-00151

PATIENT
  Age: 49 Year
  Sex: Male
  Weight: 56 kg

DRUGS (14)
  1. VELCADE [Suspect]
     Indication: MULTIPLE MYELOMA
     Dosage: 1.30 MG/M2, UNK; INTRAVENOUS; 1.70 MG, UNK; INTRAVENOUS
     Route: 042
     Dates: start: 20051003, end: 20051030
  2. VELCADE [Suspect]
     Indication: MULTIPLE MYELOMA
     Dosage: 1.30 MG/M2, UNK; INTRAVENOUS; 1.70 MG, UNK; INTRAVENOUS
     Route: 042
     Dates: start: 20051031, end: 20051219
  3. DOXIL [Suspect]
     Indication: MULTIPLE MYELOMA
     Dosage: 23.00 MG/M2, UNK; INTRAVENOUS; 30.00 MG.M2, UNK; INTRAVENOUS
     Route: 042
     Dates: start: 20051006, end: 20051006
  4. DOXIL [Suspect]
     Indication: MULTIPLE MYELOMA
     Dosage: 23.00 MG/M2, UNK; INTRAVENOUS; 30.00 MG.M2, UNK; INTRAVENOUS
     Route: 042
     Dates: start: 20051121, end: 20051215
  5. PYRIDOXINE HCL [Concomitant]
  6. AMOXICILLIN [Concomitant]
  7. DOMPERIDONE [Concomitant]
  8. ACETAMINOPHEN [Concomitant]
  9. RANITIDINE [Concomitant]
  10. ACYCLOVIR [Concomitant]
  11. GRANISETRON [Concomitant]
  12. FILGRASTIM [Concomitant]
  13. AMBROXOL HYDROCHLORIDE [Concomitant]
  14. DOCUSATE SODIUM [Concomitant]

REACTIONS (8)
  - BLOOD CREATININE INCREASED [None]
  - CARDIAC ARREST [None]
  - DYSPNOEA [None]
  - FATIGUE [None]
  - FEBRILE NEUTROPENIA [None]
  - MYOCARDIAL INFARCTION [None]
  - MYOCARDIAL ISCHAEMIA [None]
  - REFUSAL OF TREATMENT BY PATIENT [None]
